FAERS Safety Report 5087515-0 (Version None)
Quarter: 2006Q3

REPORT INFORMATION
  Report Type: 
  Country: None (occurrence: None)
  Receive Date: 20060824
  Receipt Date: 20060621
  Transmission Date: 20061208
  Serious: Yes (Other)
  Sender: FDA-Public Use
  Company Number: US-GLAXOSMITHKLINE-A0609852A

PATIENT
  Age: 55 Year
  Sex: Female
  Weight: 62.7 kg

DRUGS (2)
  1. WELLBUTRIN XL [Suspect]
     Indication: DEPRESSION
     Dosage: 150MG PER DAY
     Route: 048
     Dates: start: 20060401, end: 20060621
  2. NEXIUM [Concomitant]
     Dosage: 40MG PER DAY
     Route: 048
     Dates: start: 20060601

REACTIONS (4)
  - BLOOD PRESSURE INCREASED [None]
  - BREAST MASS [None]
  - HEPATIC ENZYME ABNORMAL [None]
  - LYMPHADENOPATHY [None]
